FAERS Safety Report 4463301-7 (Version None)
Quarter: 2004Q3

REPORT INFORMATION
  Report Type: 
  Country: None (occurrence: None)
  Receive Date: 20040930
  Receipt Date: 20040715
  Transmission Date: 20050211
  Serious: No
  Sender: FDA-Public Use
  Company Number: US-BRISTOL-MYERS SQUIBB COMPANY-12642112

PATIENT
  Age: 44 Year
  Sex: Male
  Weight: 83 kg

DRUGS (9)
  1. REYATAZ [Suspect]
     Indication: HIV INFECTION
     Route: 048
     Dates: start: 20030717
  2. VIDEX [Suspect]
     Indication: HIV INFECTION
     Dosage: REDUCED TO 200 MG ONE TABLET DAILY
     Route: 048
     Dates: start: 20030717
  3. VIREAD [Concomitant]
  4. EPIVIR [Concomitant]
  5. DIFLUCAN [Concomitant]
  6. SEPTRA [Concomitant]
  7. ACYCLOVIR [Concomitant]
  8. VITAMIN B COMPLEX CAP [Concomitant]
  9. VITAMIN C [Concomitant]

REACTIONS (2)
  - ARTHRITIS [None]
  - NEUROPATHY [None]
